FAERS Safety Report 18813303 (Version 1)
Quarter: 2021Q1

REPORT INFORMATION
  Report Type: Spontaneous
  Country: US (occurrence: US)
  Receive Date: 20210131
  Receipt Date: 20210131
  Transmission Date: 20210419
  Serious: Yes (Death, Other)
  Sender: FDA-Public Use
  Company Number: US-PURDUE-USA-2002-0000781

PATIENT
  Age: 45 Year
  Sex: Male
  Weight: 97.51 kg

DRUGS (3)
  1. MS IR [Suspect]
     Active Substance: MORPHINE SULFATE
     Indication: PAIN
     Dosage: 30 MG, Q4H
     Route: 048
     Dates: start: 1996
  2. SERAX [Concomitant]
     Active Substance: OXAZEPAM
     Indication: PRODUCT USED FOR UNKNOWN INDICATION
     Dosage: 15 MG, TID
     Route: 048
  3. PERCOCET [Concomitant]
     Active Substance: ACETAMINOPHEN\OXYCODONE HYDROCHLORIDE
     Indication: PRODUCT USED FOR UNKNOWN INDICATION
     Dosage: 10 UNK, TID
     Route: 048

REACTIONS (7)
  - Drug dependence [Unknown]
  - Somnolence [Recovered/Resolved]
  - Death [Fatal]
  - Amnesia [Recovered/Resolved]
  - Dysgeusia [Recovered/Resolved]
  - Confusional state [Recovered/Resolved]
  - Paranoia [Unknown]

NARRATIVE: CASE EVENT DATE: 20020417
